FAERS Safety Report 5283997-X (Version None)
Quarter: 2007Q1

REPORT INFORMATION
  Report Type: 
  Country: None (occurrence: None)
  Receive Date: 20070327
  Receipt Date: 20070315
  Transmission Date: 20070707
  Serious: Yes (Other)
  Sender: FDA-Public Use
  Company Number: 430012M07USA

PATIENT
  Age: 46 Year
  Sex: Male

DRUGS (3)
  1. NOVANTRONE [Suspect]
     Indication: MULTIPLE SCLEROSIS
     Dosage: 1 IN 3 MONTHS, INTRAVENOUS
     Route: 042
     Dates: start: 20020121, end: 20060119
  2. HIGH DOSE INTRAVENOUS STEROIDS (CORTICOSTEROIDS FOR SYSTEMIC USE) [Concomitant]
  3. BACLOFEN PUMP (BACLOFEN) [Concomitant]

REACTIONS (5)
  - CARDIOMEGALY [None]
  - DYSPNOEA [None]
  - EJECTION FRACTION DECREASED [None]
  - INFLUENZA LIKE ILLNESS [None]
  - ORTHOPNOEA [None]
